FAERS Safety Report 9653638 (Version 2)
Quarter: 2013Q4

REPORT INFORMATION
  Report Type: Spontaneous
  Country: JP (occurrence: JP)
  Receive Date: 20131029
  Receipt Date: 20131101
  Transmission Date: 20140711
  Serious: Yes (Hospitalization)
  Sender: FDA-Public Use
  Company Number: JP-B.I. PHARMACEUTICALS,INC./RIDGEFIELD-2013-BI-33824NB

PATIENT
  Age: 88 Year
  Sex: Female

DRUGS (1)
  1. PRAZAXA [Suspect]
     Route: 065
     Dates: end: 20131021

REACTIONS (3)
  - Renal impairment [Unknown]
  - Decreased appetite [Unknown]
  - Dehydration [Unknown]
